FAERS Safety Report 9837688 (Version 6)
Quarter: 2014Q2

REPORT INFORMATION
  Report Type: Spontaneous
  Country: DE (occurrence: DE)
  Receive Date: 20140123
  Receipt Date: 20140606
  Transmission Date: 20141212
  Serious: Yes (Hospitalization, Other)
  Sender: FDA-Public Use
  Company Number: DE-JNJFOC-20140112675

PATIENT
  Age: 81 Year
  Sex: Male
  Weight: 92 kg

DRUGS (3)
  1. ZYTIGA [Suspect]
     Indication: PROSTATE CANCER METASTATIC
     Dosage: (250 MG X 4) SINCE 8 WEEKS
     Route: 048
     Dates: start: 20131203, end: 20140120
  2. PREDNISONE [Concomitant]
     Route: 065
  3. FORTECORTIN (DEXAMETHASONE) [Concomitant]
     Route: 065
     Dates: start: 20131203, end: 20140120

REACTIONS (6)
  - Leukopenia [Unknown]
  - Platelet count decreased [Not Recovered/Not Resolved]
  - Haemorrhage [Not Recovered/Not Resolved]
  - Depressed level of consciousness [Unknown]
  - Altered state of consciousness [Unknown]
  - Anaemia [Unknown]
